FAERS Safety Report 5656063-9 (Version None)
Quarter: 2008Q1

REPORT INFORMATION
  Report Type: 
  Country: None (occurrence: None)
  Receive Date: 20080307
  Receipt Date: 20080225
  Transmission Date: 20080703
  Serious: Yes (Hospitalization)
  Sender: FDA-Public Use
  Company Number: AU-PFIZER INC-2008020097

PATIENT
  Sex: Male

DRUGS (3)
  1. SUTENT [Suspect]
     Indication: RENAL CELL CARCINOMA
  2. KARVEA [Concomitant]
  3. NEXIUM [Concomitant]

REACTIONS (2)
  - INFLUENZA LIKE ILLNESS [None]
  - SKIN DISORDER [None]
